FAERS Safety Report 10596177 (Version 1)
Quarter: 2014Q4

REPORT INFORMATION
  Report Type: Report from Study
  Country: US (occurrence: US)
  Receive Date: 20141120
  Receipt Date: 20141120
  Transmission Date: 20150529
  Serious: Yes (Hospitalization, Other)
  Sender: FDA-Public Use
  Company Number: PHEH2014US022699

PATIENT
  Sex: Female

DRUGS (4)
  1. GILENYA [Suspect]
     Active Substance: FINGOLIMOD HYDROCHLORIDE
     Indication: MULTIPLE SCLEROSIS
     Route: 065
     Dates: end: 201404
  2. METHOCARBAMOL. [Suspect]
     Active Substance: METHOCARBAMOL
     Indication: PAIN
     Route: 065
  3. TIZANIDINE (TIZANIDINE) [Suspect]
     Active Substance: TIZANIDINE
     Indication: ANXIETY
     Dosage: 4 MG, UNK
     Route: 065
  4. AVONEX [Suspect]
     Active Substance: INTERFERON BETA-1A
     Indication: PRODUCT USED FOR UNKNOWN INDICATION
     Route: 065

REACTIONS (17)
  - Brain oedema [Unknown]
  - Fatigue [Unknown]
  - Depressed mood [Unknown]
  - Central nervous system lesion [Unknown]
  - Anxiety [Unknown]
  - Asthenia [Unknown]
  - Diplopia [Unknown]
  - Gastrointestinal disorder [Unknown]
  - Migraine [Unknown]
  - Spinal cord oedema [Unknown]
  - Visual impairment [Unknown]
  - Visual acuity reduced [Unknown]
  - Hypoaesthesia [Unknown]
  - Spinal cord injury [Unknown]
  - Pain [Unknown]
  - Gait disturbance [Unknown]
  - Gastrointestinal motility disorder [Unknown]
